FAERS Safety Report 19771860 (Version 2)
Quarter: 2021Q3

REPORT INFORMATION
  Report Type: Spontaneous
  Country: DE (occurrence: DE)
  Receive Date: 20210831
  Receipt Date: 20210831
  Transmission Date: 20211014
  Serious: Yes (Other)
  Sender: FDA-Public Use
  Company Number: DE-MYLANLABS-2021M1049454

PATIENT
  Age: 43 Year
  Sex: Male

DRUGS (1)
  1. AMLODIPINE/VALSARTAN MYLAN 10 MG/160 MG FILM?COATED TABLETS [Suspect]
     Active Substance: AMLODIPINE\VALSARTAN
     Indication: HYPERTENSION
     Dosage: UNK UNK, QD
     Route: 048

REACTIONS (4)
  - Drug ineffective [Unknown]
  - Hypertension [Unknown]
  - Product shape issue [Unknown]
  - Product colour issue [Unknown]
